FAERS Safety Report 13981681 (Version 1)
Quarter: 2017Q3

REPORT INFORMATION
  Report Type: Spontaneous
  Country: US (occurrence: US)
  Receive Date: 20170918
  Receipt Date: 20170918
  Transmission Date: 20171128
  Serious: No
  Sender: FDA-Public Use
  Company Number: US-BION-005859

PATIENT
  Age: 61 Year
  Sex: Female
  Weight: 99.79 kg

DRUGS (1)
  1. ZYRTEC [Suspect]
     Active Substance: CETIRIZINE HYDROCHLORIDE
     Indication: SINUS DISORDER
     Dosage: 2 LIQUID GELS ONCE?UPC: 0045020425USA
     Route: 048
     Dates: start: 20161223

REACTIONS (3)
  - Accidental exposure to product [Not Recovered/Not Resolved]
  - Wrong drug administered [Not Recovered/Not Resolved]
  - Expired product administered [Not Recovered/Not Resolved]

NARRATIVE: CASE EVENT DATE: 20161123
